FAERS Safety Report 7973865-4 (Version None)
Quarter: 2011Q4

REPORT INFORMATION
  Report Type: 
  Country: None (occurrence: None)
  Receive Date: 20111201
  Receipt Date: 20111115
  Transmission Date: 20120403
  Serious: Yes (Death, Life-Threatening, Hospitalization)
  Sender: FDA-Public Use
  Company Number: 2009-04215

PATIENT
  Age: 70 Year
  Sex: Female
  Weight: 50 kg

DRUGS (3)
  1. VELCADE [Suspect]
     Indication: MULTIPLE MYELOMA
     Dosage: 1.19 MG, ,INTRAVENOUS
     Route: 042
     Dates: start: 20090713, end: 20090827
  2. RED BLOOD CELLS [Concomitant]
  3. PLATELETS [Concomitant]

REACTIONS (1)
  - FEMORAL NECK FRACTURE [None]
